FAERS Safety Report 14757876 (Version 1)
Quarter: 2018Q2

REPORT INFORMATION
  Report Type: Spontaneous
  Country: US (occurrence: US)
  Receive Date: 20180409
  Receipt Date: 20180409
  Transmission Date: 20180711
  Serious: No
  Sender: FDA-Public Use
  Company Number: None

PATIENT
  Age: 82 Year
  Sex: Male
  Weight: 81 kg

DRUGS (11)
  1. CARVEDILOL. [Concomitant]
     Active Substance: CARVEDILOL
  2. TAMSULOSIN [Concomitant]
     Active Substance: TAMSULOSIN
  3. VITAMIN B12 [Concomitant]
     Active Substance: CYANOCOBALAMIN
  4. VITAMIN D [Concomitant]
     Active Substance: CHOLECALCIFEROL
  5. TOLCYLEN ANTIFUNGAL SOLUTION [Suspect]
     Active Substance: TOLNAFTATE
     Indication: ANTIFUNGAL TREATMENT
     Dosage: ?          QUANTITY:1 DROP(S);?
     Route: 061
     Dates: start: 20180407, end: 20180409
  6. AVODART [Concomitant]
     Active Substance: DUTASTERIDE
  7. CHLORTHALIDONE. [Concomitant]
     Active Substance: CHLORTHALIDONE
  8. RAMIPRIL. [Concomitant]
     Active Substance: RAMIPRIL
  9. RANITIDINE. [Concomitant]
     Active Substance: RANITIDINE
  10. ELIQUIS [Concomitant]
     Active Substance: APIXABAN
  11. LIPITOR [Concomitant]
     Active Substance: ATORVASTATIN CALCIUM

REACTIONS (2)
  - Hypersensitivity [None]
  - Product label confusion [None]

NARRATIVE: CASE EVENT DATE: 20180407
